FAERS Safety Report 11408629 (Version 1)
Quarter: 2015Q3

REPORT INFORMATION
  Report Type: Spontaneous
  Country: US (occurrence: US)
  Receive Date: 20150822
  Receipt Date: 20150822
  Transmission Date: 20151125
  Serious: No
  Sender: FDA-Public Use
  Company Number: US-009507513-1508USA006366

PATIENT
  Age: 29 Year
  Sex: Female

DRUGS (1)
  1. NEXPLANON [Suspect]
     Active Substance: ETONOGESTREL
     Indication: CONTRACEPTION
     Dosage: 68 MG, EVERY 3 YEARS
     Route: 059
     Dates: start: 20150730, end: 20150810

REACTIONS (5)
  - Device kink [Recovered/Resolved]
  - Product quality issue [Unknown]
  - Hypoaesthesia [Recovered/Resolved]
  - Paraesthesia [Recovered/Resolved]
  - Pain in extremity [Recovered/Resolved]

NARRATIVE: CASE EVENT DATE: 2015
